FAERS Safety Report 6891527-1 (Version None)
Quarter: 2010Q3

REPORT INFORMATION
  Report Type: 
  Country: None (occurrence: None)
  Receive Date: 20100731
  Receipt Date: 20070912
  Transmission Date: 20110219
  Serious: Yes (Other)
  Sender: FDA-Public Use
  Company Number: US-PFIZER INC-2007052081

PATIENT
  Sex: Female
  Weight: 68.5 kg

DRUGS (1)
  1. NEURONTIN [Suspect]
     Indication: BACK PAIN
     Route: 048
     Dates: start: 20070404, end: 20070414

REACTIONS (1)
  - LOSS OF CONSCIOUSNESS [None]
